FAERS Safety Report 10568024 (Version 3)
Quarter: 2015Q1

REPORT INFORMATION
  Report Type: Spontaneous
  Country: US (occurrence: None)
  Receive Date: 20141103
  Receipt Date: 20150126
  Transmission Date: 20150720
  Serious: Yes (Death, Hospitalization)
  Sender: FDA-Public Use
  Company Number: US-001379N

PATIENT
  Age: 75 Year
  Sex: Female

DRUGS (22)
  1. CIPRO [Concomitant]
     Active Substance: CIPROFLOXACIN HYDROCHLORIDE
  2. GATTEX [Suspect]
     Active Substance: TEDUGLUTIDE\WATER
     Indication: SHORT-BOWEL SYNDROME
     Dosage: DF
     Route: 058
     Dates: start: 20140402
  3. DICYCLOMINE [Concomitant]
     Active Substance: DICYCLOMINE HYDROCHLORIDE
  4. FOLIC ACID. [Concomitant]
     Active Substance: FOLIC ACID
  5. METRONIDAZOLE. [Concomitant]
     Active Substance: METRONIDAZOLE
  6. ABILIFY [Concomitant]
     Active Substance: ARIPIPRAZOLE
  7. FLUOXETINE [Concomitant]
     Active Substance: FLUOXETINE\FLUOXETINE HYDROCHLORIDE
  8. LOMOTIL [Concomitant]
     Active Substance: ATROPINE SULFATE\DIPHENOXYLATE HYDROCHLORIDE
  9. METRONIDAZOLE. [Concomitant]
     Active Substance: METRONIDAZOLE
  10. ATROPINE W/HYOSCINE/HYOSCYAMINE/PHENOBARBITAL [Concomitant]
  11. COREG [Concomitant]
     Active Substance: CARVEDILOL
  12. ULTRAM [Concomitant]
     Active Substance: TRAMADOL HYDROCHLORIDE
  13. VALIUM [Concomitant]
     Active Substance: DIAZEPAM
  14. FAT EMULSION NOS [Concomitant]
     Active Substance: EGG PHOSPHOLIPIDS\SAFFLOWER OIL\SOYBEAN OIL
  15. SOLUTIONS FOR PARENTERAL NUTRITION [Concomitant]
     Active Substance: AMINO ACIDS\DEXTROSE\ELECTROLYTES NOS
  16. CARVEDILOL. [Concomitant]
     Active Substance: CARVEDILOL
  17. LOMOTIL [Concomitant]
     Active Substance: ATROPINE SULFATE\DIPHENOXYLATE HYDROCHLORIDE
  18. PREDNISONE. [Concomitant]
     Active Substance: PREDNISONE
  19. ASACOL [Concomitant]
     Active Substance: MESALAMINE
  20. BUPROPION HCL [Concomitant]
     Active Substance: BUPROPION HYDROCHLORIDE
  21. FOLIC ACID. [Concomitant]
     Active Substance: FOLIC ACID
  22. PROLIA [Concomitant]
     Active Substance: DENOSUMAB

REACTIONS (5)
  - Dehydration [None]
  - Abdominal pain [None]
  - White blood cell count increased [None]
  - Sepsis [None]
  - Pyrexia [None]

NARRATIVE: CASE EVENT DATE: 201410
